FAERS Safety Report 9844350 (Version 1)
Quarter: 2014Q1

REPORT INFORMATION
  Report Type: Spontaneous
  Country: AT (occurrence: AT)
  Receive Date: 20140127
  Receipt Date: 20140127
  Transmission Date: 20141002
  Serious: Yes (Death, Hospitalization)
  Sender: FDA-Public Use
  Company Number: PHHY2014AT004853

PATIENT
  Age: 81 Year
  Sex: Male

DRUGS (2)
  1. GRANISETRON [Suspect]
     Dosage: 2 MG, PER DAY
  2. AZACITIDINE [Suspect]
     Indication: REFRACTORY ANAEMIA WITH AN EXCESS OF BLASTS
     Dosage: 130 MG, DAY 1-7
     Route: 058

REACTIONS (5)
  - Renal failure [Fatal]
  - Colitis ischaemic [Unknown]
  - Abdominal pain [Unknown]
  - Peritonitis [Unknown]
  - Large intestine perforation [Unknown]
